FAERS Safety Report 17180212 (Version 2)
Quarter: 2020Q1

REPORT INFORMATION
  Report Type: Spontaneous
  Country: US (occurrence: US)
  Receive Date: 20191219
  Receipt Date: 20200131
  Transmission Date: 20200409
  Serious: No
  Sender: FDA-Public Use
  Company Number: US-BAYER-2019-226635

PATIENT
  Age: 20 Year
  Sex: Female
  Weight: 104.76 kg

DRUGS (1)
  1. MIRENA [Suspect]
     Active Substance: LEVONORGESTREL
     Indication: CONTRACEPTION
     Dosage: 20 MCG/24HR, CONT
     Route: 015
     Dates: start: 20191209, end: 20191209

REACTIONS (3)
  - Medical device monitoring error [None]
  - Contraindicated device used [None]
  - Device use issue [None]

NARRATIVE: CASE EVENT DATE: 20191209
